FAERS Safety Report 15366901 (Version 2)
Quarter: 2018Q3

REPORT INFORMATION
  Report Type: Spontaneous
  Country: US (occurrence: US)
  Receive Date: 20180910
  Receipt Date: 20180912
  Transmission Date: 20181010
  Serious: Yes (Death, Hospitalization)
  Sender: FDA-Public Use
  Company Number: US-ARRAY-2018-04421

PATIENT

DRUGS (1)
  1. MEKTOVI [Suspect]
     Active Substance: BINIMETINIB
     Indication: COLORECTAL CANCER
     Dosage: UNK
     Route: 048

REACTIONS (4)
  - Death [Fatal]
  - Hospitalisation [Unknown]
  - Off label use [Unknown]
  - Drug ineffective [Unknown]
